FAERS Safety Report 6807828-9 (Version None)
Quarter: 2010Q2

REPORT INFORMATION
  Report Type: 
  Country: None (occurrence: None)
  Receive Date: 20100629
  Receipt Date: 20090127
  Transmission Date: 20101027
  Serious: No
  Sender: FDA-Public Use
  Company Number: US-PFIZER INC-2009162617

PATIENT
  Sex: Male

DRUGS (1)
  1. TIKOSYN [Suspect]
     Dates: start: 20080101

REACTIONS (1)
  - DIARRHOEA [None]
